FAERS Safety Report 11501710 (Version 1)
Quarter: 2015Q3

REPORT INFORMATION
  Report Type: Spontaneous
  Country: IT (occurrence: IT)
  Receive Date: 20150914
  Receipt Date: 20150914
  Transmission Date: 20151125
  Serious: Yes (Other)
  Sender: FDA-Public Use
  Company Number: IT-B.I. PHARMACEUTICALS,INC./RIDGEFIELD-2015-BI-48921BI

PATIENT
  Age: 71 Year
  Sex: Male

DRUGS (2)
  1. SIFROL [Suspect]
     Active Substance: PRAMIPEXOLE
     Indication: PARKINSON^S DISEASE
     Dosage: 3 MG
     Route: 065
  2. LEVODOPA-CARBIDOPA INTESTINAL GEL [Suspect]
     Active Substance: CARBIDOPA\LEVODOPA
     Indication: PARKINSON^S DISEASE
     Dosage: FORMULATION: INTESTINAL GEL, INFUSION
     Route: 065

REACTIONS (2)
  - Stereotypy [Unknown]
  - Dopamine dysregulation syndrome [Unknown]
